FAERS Safety Report 5723886-7 (Version None)
Quarter: 2008Q2

REPORT INFORMATION
  Report Type: 
  Country: None (occurrence: None)
  Receive Date: 20080428
  Receipt Date: 20080417
  Transmission Date: 20081010
  Serious: Yes (Other)
  Sender: FDA-Public Use
  Company Number: 2008AP000983

PATIENT
  Age: 55 Year
  Sex: Female
  Weight: 48.9885 kg

DRUGS (7)
  1. TIZANIDINE HYDROCHLORIDE [Suspect]
     Indication: MUSCLE RELAXANT THERAPY
     Dosage: 2 TAB; QID; PO
     Route: 048
  2. DIAZEPAM [Concomitant]
  3. THEOPHYLLINE [Concomitant]
  4. POLYETHYLENE GLYCOL [Concomitant]
  5. AMITRIPTYLINE HCL [Concomitant]
  6. HYDR0C0D0NE W/ ACETAMINOPHEN [Concomitant]
  7. TIZANIDINE HCL [Concomitant]

REACTIONS (1)
  - INSOMNIA [None]
